FAERS Safety Report 6372570-8 (Version None)
Quarter: 2009Q3

REPORT INFORMATION
  Report Type: 
  Country: None (occurrence: None)
  Receive Date: 20090924
  Receipt Date: 20080915
  Transmission Date: 20100115
  Serious: No
  Sender: FDA-Public Use
  Company Number: US-ASTRAZENECA-2008UW19052

PATIENT
  Age: 49 Year
  Sex: Female

DRUGS (2)
  1. SEROQUEL [Suspect]
     Route: 048
  2. BACLICIN [Concomitant]

REACTIONS (2)
  - ABNORMAL DREAMS [None]
  - CRYING [None]
